FAERS Safety Report 5315981-1 (Version None)
Quarter: 2007Q2

REPORT INFORMATION
  Report Type: 
  Country: None (occurrence: None)
  Receive Date: 20070503
  Receipt Date: 20070423
  Transmission Date: 20071010
  Serious: Yes (Hospitalization)
  Sender: FDA-Public Use
  Company Number: IT-PFIZER INC-2007021373

PATIENT
  Sex: Male

DRUGS (3)
  1. VFEND [Suspect]
     Indication: ASPERGILLOSIS
     Dosage: DAILY DOSE:300MG
     Route: 048
     Dates: start: 20070301, end: 20070406
  2. GANCICLOVIR [Concomitant]
     Dates: start: 20070302, end: 20070328
  3. CEFTAZIDIME PENTAHYDRATE [Concomitant]
     Dates: start: 20070226, end: 20070313

REACTIONS (2)
  - HALLUCINATION, VISUAL [None]
  - PANIC ATTACK [None]
